FAERS Safety Report 14343429 (Version 4)
Quarter: 2018Q1

REPORT INFORMATION
  Report Type: Spontaneous
  Country: JP (occurrence: JP)
  Receive Date: 20180102
  Receipt Date: 20180117
  Transmission Date: 20180509
  Serious: Yes (Other)
  Sender: FDA-Public Use
  Company Number: JP-PFIZER INC-2018000002

PATIENT
  Age: 64 Year
  Sex: Female

DRUGS (3)
  1. MYONAL /00287502/ [Concomitant]
     Active Substance: EPERISONE HYDROCHLORIDE
     Dosage: 100 MG, 1X/DAY
     Route: 048
     Dates: start: 20171211, end: 20171222
  2. CELECOX [Suspect]
     Active Substance: CELECOXIB
     Dosage: 200 MG, 1X/DAY
     Route: 048
     Dates: start: 20171211, end: 20171222
  3. MUCOSTA [Concomitant]
     Active Substance: REBAMIPIDE
     Dosage: 200 MG, 1X/DAY
     Route: 048
     Dates: start: 20171211, end: 20171222

REACTIONS (2)
  - Rash [Unknown]
  - Arrhythmia [Unknown]

NARRATIVE: CASE EVENT DATE: 20171223
